FAERS Safety Report 7138877-1 (Version None)
Quarter: 2010Q4

REPORT INFORMATION
  Report Type: 
  Country: None (occurrence: None)
  Receive Date: 20101206
  Receipt Date: 20101125
  Transmission Date: 20110411
  Serious: Yes (Life-Threatening, Other)
  Sender: FDA-Public Use
  Company Number: CA-BAXTER-2010BH028749

PATIENT
  Age: 64 Year
  Sex: Female

DRUGS (1)
  1. LIDOCAINE HCL IN 5% DEXTROSE INJECTION IN PLASTIC CONTAINER [Suspect]
     Indication: PRODUCT USED FOR UNKNOWN INDICATION
     Route: 042
     Dates: start: 20101101, end: 20101101

REACTIONS (10)
  - BLOOD PRESSURE DECREASED [None]
  - COMA [None]
  - CONVULSION [None]
  - DRUG TOXICITY [None]
  - PRODUCT PACKAGING ISSUE [None]
  - PULSE PRESSURE DECREASED [None]
  - RESPIRATORY DISORDER [None]
  - STARING [None]
  - UNRESPONSIVE TO STIMULI [None]
  - WRONG DRUG ADMINISTERED [None]
